FAERS Safety Report 17828629 (Version 1)
Quarter: 2020Q2

REPORT INFORMATION
  Report Type: Spontaneous
  Country: US (occurrence: US)
  Receive Date: 20200527
  Receipt Date: 20200527
  Transmission Date: 20200714
  Serious: Yes (Hospitalization, Disabling, Other)
  Sender: FDA-Public Use
  Company Number: US-SA-2020SA133664

PATIENT
  Sex: Male

DRUGS (1)
  1. ZANTAC 75 [Suspect]
     Active Substance: RANITIDINE HYDROCHLORIDE
     Dosage: UNK
     Route: 048
     Dates: start: 2008, end: 2019

REACTIONS (9)
  - Emotional distress [Unknown]
  - Anhedonia [Unknown]
  - Injury [Unknown]
  - Physical disability [Unknown]
  - Unevaluable event [Unknown]
  - Exposure via ingestion [Unknown]
  - Neoplasm malignant [Unknown]
  - Pain [Unknown]
  - Prostate cancer [Unknown]
